FAERS Safety Report 6740040-0 (Version None)
Quarter: 2010Q2

REPORT INFORMATION
  Report Type: 
  Country: None (occurrence: None)
  Receive Date: 20100525
  Receipt Date: 20100513
  Transmission Date: 20101027
  Serious: Yes (Other)
  Sender: FDA-Public Use
  Company Number: PHHY2010TN31060

PATIENT
  Sex: Male

DRUGS (5)
  1. ZOMETA [Suspect]
     Indication: MULTIPLE MYELOMA
     Dosage: 4 MG, QMO
     Dates: start: 20040101, end: 20100401
  2. TRAMAL [Concomitant]
     Dosage: UNK
  3. DUPHALAC [Concomitant]
     Dosage: UNK
  4. MELPHALAN HYDROCHLORIDE [Concomitant]
     Dosage: UNK
  5. PREDNISONE [Concomitant]
     Dosage: UNK

REACTIONS (2)
  - DENTAL CARIES [None]
  - OSTEONECROSIS OF JAW [None]
